FAERS Safety Report 20022600 (Version 2)
Quarter: 2021Q4

REPORT INFORMATION
  Report Type: Spontaneous
  Country: US (occurrence: US)
  Receive Date: 20211102
  Receipt Date: 20211122
  Transmission Date: 20220303
  Serious: No
  Sender: FDA-Public Use
  Company Number: US-009507513-2110USA002435

PATIENT
  Age: 59 Year
  Sex: Male

DRUGS (5)
  1. INVANZ [Suspect]
     Active Substance: ERTAPENEM SODIUM
     Indication: Staphylococcal infection
     Dosage: 1 GRAM, DAILY (QD)
     Route: 042
  2. PRIMAXIN IV [Suspect]
     Active Substance: CILASTATIN SODIUM\IMIPENEM
     Indication: Mycobacterium abscessus infection
     Route: 042
  3. VANCOMYCIN [Concomitant]
     Active Substance: VANCOMYCIN
     Indication: Staphylococcal infection
     Dosage: 15 MILLIGRAM/KILOGRAM, Q12H
     Route: 042
  4. CEFAZOLIN [Concomitant]
     Active Substance: CEFAZOLIN
     Indication: Staphylococcal infection
     Dosage: 2 GRAM, EVERY 8 HOURS
  5. CEFAZOLIN [Concomitant]
     Active Substance: CEFAZOLIN
     Dosage: 2 GRAM, EVERY 6 HOURS

REACTIONS (2)
  - Off label use [Unknown]
  - Product use in unapproved indication [Unknown]
